FAERS Safety Report 7820794-2 (Version None)
Quarter: 2011Q4

REPORT INFORMATION
  Report Type: 
  Country: None (occurrence: None)
  Receive Date: 20111013
  Receipt Date: 20111006
  Transmission Date: 20120403
  Serious: Yes (Other)
  Sender: FDA-Public Use
  Company Number: 2011SP039756

PATIENT
  Age: 41 Year
  Sex: Female
  Weight: 60 kg

DRUGS (4)
  1. REFLEXAN [Concomitant]
  2. IBUPROFEN [Concomitant]
  3. NUVARING [Suspect]
     Indication: CONTRACEPTION
     Dosage: QM;VAG
     Route: 067
     Dates: start: 20030101
  4. KETOPROFEN [Concomitant]

REACTIONS (11)
  - METRORRHAGIA [None]
  - VERTIGO [None]
  - TRIGEMINAL NEURALGIA [None]
  - HEADACHE [None]
  - DENTAL CARE [None]
  - NAUSEA [None]
  - DIZZINESS [None]
  - TINNITUS [None]
  - PREMENSTRUAL SYNDROME [None]
  - STRESS [None]
  - INTENTIONAL DRUG MISUSE [None]
